FAERS Safety Report 6484506-X (Version None)
Quarter: 2009Q4

REPORT INFORMATION
  Report Type: 
  Country: None (occurrence: None)
  Receive Date: 20091209
  Receipt Date: 20091130
  Transmission Date: 20100525
  Serious: Yes (Hospitalization)
  Sender: FDA-Public Use
  Company Number: PHHY2009US53080

PATIENT
  Sex: Female
  Weight: 130 kg

DRUGS (1)
  1. RECLAST [Suspect]
     Dosage: 5 MG, UNK

REACTIONS (2)
  - CHEST PAIN [None]
  - SINUS TACHYCARDIA [None]
